FAERS Safety Report 20760048 (Version 2)
Quarter: 2022Q2

REPORT INFORMATION
  Report Type: Spontaneous
  Country: US (occurrence: US)
  Receive Date: 20220427
  Receipt Date: 20220618
  Transmission Date: 20220721
  Serious: No
  Sender: FDA-Public Use
  Company Number: US-BRISTOL-MYERS SQUIBB COMPANY-2022-026796

PATIENT
  Age: 67 Year
  Sex: Male

DRUGS (1)
  1. REVLIMID [Suspect]
     Active Substance: LENALIDOMIDE
     Indication: Pancytopenia
     Route: 048
     Dates: start: 20210416

REACTIONS (4)
  - Chest pain [Recovered/Resolved]
  - Oral pain [Unknown]
  - Abdominal discomfort [Unknown]
  - Intentional product use issue [Unknown]
